FAERS Safety Report 20230817 (Version 1)
Quarter: 2021Q4

REPORT INFORMATION
  Report Type: Report from Study
  Country: US (occurrence: US)
  Receive Date: 20211227
  Receipt Date: 20211227
  Transmission Date: 20220303
  Serious: Yes (Other)
  Sender: FDA-Public Use
  Company Number: US-VALIDUS PHARMACEUTICALS LLC-US-VDP-2021-002862

PATIENT

DRUGS (17)
  1. METOPROLOL TARTRATE [Suspect]
     Active Substance: METOPROLOL TARTRATE
     Indication: Product used for unknown indication
     Dosage: UNK
     Route: 065
     Dates: end: 2021
  2. TYVASO [Suspect]
     Active Substance: TREPROSTINIL
     Indication: Pulmonary arterial hypertension
     Dosage: UNK
     Route: 055
     Dates: start: 20210816, end: 2021
  3. TYVASO [Suspect]
     Active Substance: TREPROSTINIL
     Dosage: 18 TO 54 MICROGRAM, QID, INHALATION
     Route: 055
     Dates: start: 202108
  4. TYVASO [Suspect]
     Active Substance: TREPROSTINIL
     Dosage: 18 MICROGRAM, INHALATION
     Route: 055
     Dates: start: 202108, end: 202108
  5. TYVASO [Suspect]
     Active Substance: TREPROSTINIL
     Dosage: 12 MICROGRAM, INHALATION
     Route: 055
     Dates: start: 202108
  6. TYVASO [Suspect]
     Active Substance: TREPROSTINIL
     Dosage: 24 MICROGRAM, INHALATION
     Route: 055
     Dates: start: 2021
  7. TYVASO [Suspect]
     Active Substance: TREPROSTINIL
     Dosage: 18 MICROGRAM, INHALATION
     Route: 055
     Dates: start: 2021, end: 2021
  8. TYVASO [Suspect]
     Active Substance: TREPROSTINIL
     Dosage: 60 TO 120 MICROGRAM, QID, INHALATION
     Route: 055
     Dates: start: 2021, end: 2021
  9. TYVASO [Suspect]
     Active Substance: TREPROSTINIL
     Dosage: 18 TO 72 MICROGRAM, QID, INHALATION
     Route: 055
     Dates: start: 2021
  10. TYVASO [Suspect]
     Active Substance: TREPROSTINIL
     Dosage: 42 MICROGRAM (PER TREATMENT)
     Route: 055
     Dates: start: 2021
  11. TYVASO [Suspect]
     Active Substance: TREPROSTINIL
     Dosage: 18 TO 72 MICROGRAM, QID, INHALATION
     Route: 055
     Dates: start: 2021, end: 2021
  12. TYVASO [Suspect]
     Active Substance: TREPROSTINIL
     Dosage: 54 MICROGRAM
     Route: 055
     Dates: start: 20210612
  13. KLONOPIN [Suspect]
     Active Substance: CLONAZEPAM
     Indication: Product used for unknown indication
     Dosage: 0.5 MG, BID
     Route: 065
     Dates: start: 20210816, end: 20210816
  14. KLONOPIN [Suspect]
     Active Substance: CLONAZEPAM
     Dosage: 1 MG, QD, MORNING
     Route: 065
     Dates: start: 20210817
  15. ELIQUIS [Concomitant]
     Active Substance: APIXABAN
     Indication: Product used for unknown indication
     Dosage: UNK
     Route: 065
  16. SILDENAFIL CITRATE [Concomitant]
     Active Substance: SILDENAFIL CITRATE
     Indication: Product used for unknown indication
     Dosage: UNK
     Route: 065
  17. FLONASE [Concomitant]
     Active Substance: FLUTICASONE PROPIONATE
     Indication: Product used for unknown indication
     Dosage: UNK
     Route: 065
     Dates: start: 20210811

REACTIONS (13)
  - Squamous cell carcinoma of skin [Unknown]
  - Nasal congestion [Unknown]
  - Ear congestion [Unknown]
  - Muscular weakness [Unknown]
  - Asthenia [Recovering/Resolving]
  - Fatigue [Recovering/Resolving]
  - Dry throat [Unknown]
  - Cough [Unknown]
  - Abdominal distension [Unknown]
  - Orthostatic hypotension [Recovered/Resolved]
  - Dizziness postural [Unknown]
  - Hypotension [Not Recovered/Not Resolved]
  - Off label use [Unknown]

NARRATIVE: CASE EVENT DATE: 20210101
